FAERS Safety Report 10934276 (Version 8)
Quarter: 2015Q3

REPORT INFORMATION
  Report Type: Report from Study
  Country: DE (occurrence: DE)
  Receive Date: 20150320
  Receipt Date: 20150812
  Transmission Date: 20151125
  Serious: Yes (Hospitalization)
  Sender: FDA-Public Use
  Company Number: DE-ROCHE-1539901

PATIENT
  Sex: Female

DRUGS (24)
  1. METHOTREXATE DISODIUM [Suspect]
     Active Substance: METHOTREXATE SODIUM
     Indication: B-CELL LYMPHOMA
     Dosage: SINGLE DOSE
     Route: 042
     Dates: start: 20150123, end: 20150123
  2. METHOTREXATE DISODIUM [Suspect]
     Active Substance: METHOTREXATE SODIUM
     Dosage: MAINTENANCE DOSE
     Route: 042
     Dates: start: 20150126, end: 20150202
  3. MORPHINE SULFATE. [Concomitant]
     Active Substance: MORPHINE SULFATE
     Indication: PAIN
     Route: 048
  4. BISOPROLOL [Concomitant]
     Active Substance: BISOPROLOL
     Indication: HYPERTENSION
     Route: 048
  5. DEXAMETHASONE. [Concomitant]
     Active Substance: DEXAMETHASONE
     Route: 048
  6. RITUXIMAB [Suspect]
     Active Substance: RITUXIMAB
     Dosage: DATE OF LAST DOSE PRIOR TO SAE: 03/MAR/2015, CYCLE NO. 2
     Route: 042
     Dates: start: 20150123
  7. PEGFILGRASTIM [Suspect]
     Active Substance: PEGFILGRASTIM
     Indication: B-CELL LYMPHOMA
     Route: 058
     Dates: start: 20150221, end: 20150307
  8. METAMIZOLE SODIUM [Concomitant]
     Active Substance: METAMIZOLE SODIUM
     Indication: PAIN
     Route: 048
  9. RITUXIMAB [Suspect]
     Active Substance: RITUXIMAB
     Indication: B-CELL LYMPHOMA
     Dosage: SINGLE DOSE
     Route: 042
     Dates: start: 20150122, end: 20150122
  10. PREDNISONE. [Suspect]
     Active Substance: PREDNISONE
     Indication: B-CELL LYMPHOMA
     Dosage: 7 DAYS PREPHASE FOR 7 DAYS
     Route: 048
     Dates: start: 20150109, end: 20150115
  11. DOXORUBICINE [Suspect]
     Active Substance: DOXORUBICIN
     Indication: B-CELL LYMPHOMA
     Dosage: ON 04/MAR/2015, SHE RECEIVED LAST CYCLE OF DOXORUBICIN (CHOP) PRIOR TO SAE
     Route: 042
     Dates: start: 20150218
  12. CALCIUM FOLINATE [Suspect]
     Active Substance: LEUCOVORIN CALCIUM
     Indication: B-CELL LYMPHOMA
     Route: 042
     Dates: start: 20150127, end: 20150202
  13. ACYCLOVIR. [Concomitant]
     Active Substance: ACYCLOVIR
     Indication: HERPES VIRUS INFECTION
     Route: 048
     Dates: start: 201505
  14. PANTOPRAZOLE SODIUM. [Concomitant]
     Active Substance: PANTOPRAZOLE SODIUM
     Indication: PROPHYLAXIS
     Route: 048
  15. HYDROCHLOROTHIAZIDE. [Concomitant]
     Active Substance: HYDROCHLOROTHIAZIDE
     Indication: POLYURIA
     Route: 048
  16. LIPOSOMAL VINCRISTINE [Suspect]
     Active Substance: VINCRISTINE
     Indication: B-CELL LYMPHOMA
     Dosage: ON 04/MAR/2015, SHE RECEIVED LAST CYCLE OF VINCRISTINE PRIOR TO SAE
     Route: 042
     Dates: start: 20150218
  17. RIVAROXABAN [Concomitant]
     Active Substance: RIVAROXABAN
     Indication: PROPHYLAXIS
     Route: 048
  18. RAMIPRIL. [Concomitant]
     Active Substance: RAMIPRIL
     Indication: HYPERTENSION
     Route: 048
  19. PREGABALIN. [Concomitant]
     Active Substance: PREGABALIN
     Indication: PAIN
     Route: 048
  20. AMLODIPINE [Concomitant]
     Active Substance: AMLODIPINE BESYLATE
     Indication: HYPERTENSION
     Route: 048
  21. CHOLECALCIFEROL [Concomitant]
     Active Substance: CHOLECALCIFEROL
     Route: 065
     Dates: start: 201502
  22. PREDNISONE. [Suspect]
     Active Substance: PREDNISONE
     Dosage: 5 DAYS OF CYCLES, ON 04/MAR/2015, SHE RECEIVED LAST CYCLE OF PREDNISONE PRIOR TO SAE
     Route: 048
     Dates: start: 20150109, end: 20150308
  23. CYCLOPHOSPHAMIDE. [Suspect]
     Active Substance: CYCLOPHOSPHAMIDE
     Indication: B-CELL LYMPHOMA
     Dosage: ON 04/MAR/2015, SHE RECEIVED LAST CYCLE OF CYCLOPHOSPHAMIDE PRIOR TO SAE
     Route: 042
     Dates: start: 20150218
  24. OFLOXACIN. [Concomitant]
     Active Substance: OFLOXACIN
     Indication: HERPES VIRUS INFECTION
     Route: 065
     Dates: start: 201505

REACTIONS (18)
  - Fall [Unknown]
  - General physical health deterioration [Recovering/Resolving]
  - Cough [Recovered/Resolved]
  - Dyspnoea exertional [Unknown]
  - Mucosal inflammation [Recovered/Resolved]
  - Pyelonephritis [Recovered/Resolved]
  - Anaemia [Unknown]
  - Leukopenia [Recovered/Resolved]
  - General physical health deterioration [Unknown]
  - Confusional state [Unknown]
  - Oedema peripheral [Unknown]
  - Thrombocytopenia [Recovered/Resolved]
  - Prerenal failure [Recovered/Resolved]
  - Urinary tract infection [Recovered/Resolved]
  - Fatigue [Recovering/Resolving]
  - Urosepsis [Recovered/Resolved]
  - Hypokalaemia [Recovered/Resolved]
  - Pyrexia [Recovered/Resolved]

NARRATIVE: CASE EVENT DATE: 20150206
